FAERS Safety Report 23144485 (Version 1)
Quarter: 2023Q4

REPORT INFORMATION
  Report Type: Spontaneous
  Country: FR (occurrence: FR)
  Receive Date: 20231103
  Receipt Date: 20231103
  Transmission Date: 20240110
  Serious: Yes (Death, Life-Threatening)
  Sender: FDA-Public Use
  Company Number: FR-JNJFOC-20231060869

PATIENT

DRUGS (1)
  1. LOPERAMIDE HYDROCHLORIDE [Suspect]
     Active Substance: LOPERAMIDE HYDROCHLORIDE
     Indication: Product used for unknown indication
     Route: 065

REACTIONS (10)
  - Electrocardiogram QT prolonged [Fatal]
  - Ventricular arrhythmia [Fatal]
  - Syncope [Fatal]
  - Ventricular extrasystoles [Fatal]
  - Cardio-respiratory arrest [Fatal]
  - Sinus bradycardia [Fatal]
  - Electrocardiogram PR prolongation [Fatal]
  - Electrocardiogram QRS complex prolonged [Fatal]
  - Electrocardiogram abnormal [Fatal]
  - Intentional product misuse [Fatal]
